FAERS Safety Report 5243413-0 (Version None)
Quarter: 2007Q1

REPORT INFORMATION
  Report Type: 
  Country: None (occurrence: None)
  Receive Date: 20070214
  Receipt Date: 20070124
  Transmission Date: 20070707
  Serious: Yes (Hospitalization)
  Sender: FDA-Public Use
  Company Number: WAES 0702KOR00006

PATIENT
  Age: 35 Year
  Sex: Female

DRUGS (3)
  1. COSOPT [Suspect]
     Indication: OPEN ANGLE GLAUCOMA
     Dosage: UNK OPHT
     Route: 047
  2. BRIMONIDINE TARTRATE [Suspect]
     Indication: OPEN ANGLE GLAUCOMA
     Dosage: UNK OPHT
     Route: 047
  3. XALATAN [Suspect]
     Indication: OPEN ANGLE GLAUCOMA
     Dosage: UNK OPHT
     Route: 047

REACTIONS (5)
  - DISEASE PROGRESSION [None]
  - DRUG INEFFECTIVE [None]
  - RETINAL DISORDER [None]
  - SCOTOMA [None]
  - VISUAL FIELD DEFECT [None]
